FAERS Safety Report 6752663-3 (Version None)
Quarter: 2010Q2

REPORT INFORMATION
  Report Type: 
  Country: None (occurrence: None)
  Receive Date: 20100602
  Receipt Date: 20100525
  Transmission Date: 20101027
  Serious: Yes (Disabling)
  Sender: FDA-Public Use
  Company Number: JP-GENENTECH-301957

PATIENT
  Sex: Female

DRUGS (14)
  1. RITUXIMAB [Suspect]
     Indication: LYMPHOPLASMACYTOID LYMPHOMA/IMMUNOCYTOMA
     Dosage: 550 MG, UNK
     Route: 042
     Dates: start: 20040903, end: 20070601
  2. RITUXIMAB [Suspect]
     Dosage: 550 MG, UNK
     Route: 042
     Dates: start: 20050721
  3. RITUXIMAB [Suspect]
     Dosage: 550 MG, UNK
     Route: 042
     Dates: start: 20050816
  4. RITUXIMAB [Suspect]
     Dosage: 550 MG, UNK
     Route: 042
     Dates: start: 20050929
  5. RITUXIMAB [Suspect]
     Dosage: 550 MG, UNK
     Route: 042
     Dates: start: 20051024
  6. ADRIACIN [Concomitant]
     Indication: DRUG USE FOR UNKNOWN INDICATION
     Dosage: 75 MG, UNK
     Route: 042
     Dates: start: 20040813
  7. ENDOXAN [Concomitant]
     Indication: DRUG USE FOR UNKNOWN INDICATION
     Dosage: 1100 MG, UNK
     Route: 042
     Dates: start: 20040813
  8. ONCOVIN [Concomitant]
     Indication: DRUG USE FOR UNKNOWN INDICATION
     Dosage: 2 MG, UNK
     Route: 042
     Dates: start: 20040813
  9. PREDNISOLONE [Concomitant]
     Indication: DRUG USE FOR UNKNOWN INDICATION
     Dosage: 100 MG, UNK
     Route: 042
     Dates: start: 20040813
  10. CLADRIBINE [Concomitant]
     Indication: DRUG USE FOR UNKNOWN INDICATION
  11. CYCLOPHOSPHAMIDE [Concomitant]
     Indication: DRUG USE FOR UNKNOWN INDICATION
  12. CYTARABINE [Concomitant]
     Indication: DRUG USE FOR UNKNOWN INDICATION
  13. ETOPOSIDE [Concomitant]
     Indication: DRUG USE FOR UNKNOWN INDICATION
  14. DEXAMETHASONE ACETATE [Concomitant]
     Indication: DRUG USE FOR UNKNOWN INDICATION

REACTIONS (2)
  - ACUTE MYELOID LEUKAEMIA [None]
  - HEPATITIS B [None]
